FAERS Safety Report 9792170 (Version 3)
Quarter: 2016Q3

REPORT INFORMATION
  Report Type: Report from Study
  Country: GB (occurrence: GB)
  Receive Date: 20140102
  Receipt Date: 20160831
  Transmission Date: 20161109
  Serious: Yes (Death, Other)
  Sender: FDA-Public Use
  Company Number: GB-CELGENEUS-167-50794-13121559

PATIENT
  Age: 79 Year
  Sex: Male

DRUGS (1)
  1. AZACITIDINE. [Suspect]
     Active Substance: AZACITIDINE
     Indication: ACUTE MYELOID LEUKAEMIA
     Dosage: 140 MILLIGRAM
     Route: 058
     Dates: start: 20131104, end: 20131112

REACTIONS (2)
  - Febrile neutropenia [Recovered/Resolved]
  - Lower respiratory tract infection [Fatal]

NARRATIVE: CASE EVENT DATE: 20131116
